FAERS Safety Report 14138995 (Version 1)
Quarter: 2017Q4

REPORT INFORMATION
  Report Type: Spontaneous
  Country: US (occurrence: US)
  Receive Date: 20171027
  Receipt Date: 20171027
  Transmission Date: 20180321
  Serious: No
  Sender: FDA-Public Use
  Company Number: US-009507513-1710USA006391

PATIENT
  Sex: Female

DRUGS (10)
  1. JANUMET [Suspect]
     Active Substance: METFORMIN HYDROCHLORIDE\SITAGLIPTIN PHOSPHATE
     Indication: BLOOD GLUCOSE ABNORMAL
  2. HYZAAR [Concomitant]
     Active Substance: HYDROCHLOROTHIAZIDE\LOSARTAN POTASSIUM
  3. SULINDAC. [Concomitant]
     Active Substance: SULINDAC
  4. NORTRIPTYLINE [Concomitant]
     Active Substance: NORTRIPTYLINE
  5. TRAZODONE HYDROCHLORIDE. [Concomitant]
     Active Substance: TRAZODONE HYDROCHLORIDE
  6. INVOKANA [Concomitant]
     Active Substance: CANAGLIFLOZIN
  7. ATORVASTATIN [Concomitant]
     Active Substance: ATORVASTATIN
  8. VENLAFAXINE HYDROCHLORIDE. [Concomitant]
     Active Substance: VENLAFAXINE HYDROCHLORIDE
  9. JANUMET [Suspect]
     Active Substance: METFORMIN HYDROCHLORIDE\SITAGLIPTIN PHOSPHATE
     Indication: TYPE 2 DIABETES MELLITUS
     Dosage: UNK, TWICE A DAY
     Route: 048
     Dates: start: 2008
  10. METHOTREXATE. [Concomitant]
     Active Substance: METHOTREXATE
     Dosage: UNK, ONCE A WEEK

REACTIONS (5)
  - Blood glucose increased [Recovered/Resolved]
  - Headache [Unknown]
  - Drug dose omission [Unknown]
  - Thirst [Recovered/Resolved]
  - Polydipsia [Recovered/Resolved]
